FAERS Safety Report 4360141-4 (Version None)
Quarter: 2004Q2

REPORT INFORMATION
  Report Type: 
  Country: None (occurrence: None)
  Receive Date: 20040514
  Receipt Date: 20040506
  Transmission Date: 20050107
  Serious: Yes (Hospitalization)
  Sender: FDA-Public Use
  Company Number: STA-AE-04-MTX-185

PATIENT
  Age: 55 Year
  Sex: Female

DRUGS (2)
  1. METHOTREXATE [Suspect]
     Indication: PSORIATIC ARTHROPATHY
     Dosage: 7.5 MG, ORAL
     Route: 048
     Dates: start: 20010101, end: 20040101
  2. ENBREL (ETANERCEPT, INJECTION) [Suspect]
     Indication: PSORIATIC ARTHROPATHY
     Dosage: 25 MG 2X PER 1 WK , SC
     Route: 058
     Dates: start: 20030501, end: 20040101

REACTIONS (3)
  - ASTHENIA [None]
  - DRUG INEFFECTIVE [None]
  - SMALL CELL LUNG CANCER STAGE UNSPECIFIED [None]
